FAERS Safety Report 4809519-2 (Version None)
Quarter: 2005Q4

REPORT INFORMATION
  Report Type: 
  Country: None (occurrence: None)
  Receive Date: 20051025
  Receipt Date: 20051017
  Transmission Date: 20060501
  Serious: Yes (Death)
  Sender: FDA-Public Use
  Company Number: IT-MERCK-0510ITA00027

PATIENT
  Age: 70 Year
  Sex: Female

DRUGS (1)
  1. CANCIDAS [Suspect]
     Indication: CANDIDIASIS
     Route: 051

REACTIONS (1)
  - ANAPHYLACTIC SHOCK [None]
